FAERS Safety Report 6186605-9 (Version None)
Quarter: 2009Q2

REPORT INFORMATION
  Report Type: 
  Country: None (occurrence: None)
  Receive Date: 20090507
  Receipt Date: 20090507
  Transmission Date: 20091009
  Serious: Yes (Other)
  Sender: FDA-Public Use
  Company Number: None

PATIENT
  Age: 26 Year
  Sex: Male
  Weight: 84.369 kg

DRUGS (2)
  1. CITALOPRAM HYDROBROMIDE [Suspect]
     Indication: ANXIETY
     Dosage: 20MG ONCE DAILY PO
     Route: 048
     Dates: start: 20090331, end: 20090424
  2. PRISTIQ [Suspect]
     Indication: ANXIETY
     Dosage: 50MG ONCE DAILY PO
     Route: 048
     Dates: start: 20090425, end: 20090430

REACTIONS (4)
  - ERECTILE DYSFUNCTION [None]
  - LIBIDO DECREASED [None]
  - MALE ORGASMIC DISORDER [None]
  - PRODUCT LABEL ISSUE [None]
